FAERS Safety Report 6307069-8 (Version None)
Quarter: 2009Q3

REPORT INFORMATION
  Report Type: 
  Country: None (occurrence: None)
  Receive Date: 20090812
  Receipt Date: 20090805
  Transmission Date: 20100115
  Serious: Yes (Hospitalization)
  Sender: FDA-Public Use
  Company Number: PHHO2009US04010

PATIENT
  Sex: Male
  Weight: 125.5 kg

DRUGS (3)
  1. BLINDED ACZ885 ACZ+ [Suspect]
     Indication: GOUT
     Dosage: DOUBLE BLIND
     Dates: start: 20090217
  2. BLINDED NO TREATMENT RECEIVED NOMED [Suspect]
     Indication: GOUT
     Dosage: DOUBLE BLIND
     Dates: start: 20090217
  3. BLINDED TRIAMCINOLONE ACETONIDE COMP-TRI+ [Suspect]
     Indication: GOUT
     Dosage: DOUBLE BLIND
     Dates: start: 20090217

REACTIONS (3)
  - APPENDICECTOMY [None]
  - APPENDICITIS [None]
  - WHITE BLOOD CELL COUNT INCREASED [None]
